FAERS Safety Report 7340733-0 (Version None)
Quarter: 2011Q1

REPORT INFORMATION
  Report Type: 
  Country: None (occurrence: None)
  Receive Date: 20110309
  Receipt Date: 20110301
  Transmission Date: 20110831
  Serious: Yes (Other)
  Sender: FDA-Public Use
  Company Number: JP-SANOFI-AVENTIS-2011SA012108

PATIENT
  Sex: Female

DRUGS (2)
  1. AMARYL [Suspect]
     Dosage: AFTER MEALS
     Route: 048
  2. AMARYL [Suspect]
     Dosage: BEFORE MEAL
     Route: 048

REACTIONS (2)
  - CONVULSION [None]
  - ALTERED STATE OF CONSCIOUSNESS [None]
